FAERS Safety Report 11738118 (Version 1)
Quarter: 2015Q4

REPORT INFORMATION
  Report Type: Spontaneous
  Country: US (occurrence: US)
  Receive Date: 20151110
  Receipt Date: 20151110
  Transmission Date: 20160304
  Serious: No
  Sender: FDA-Public Use
  Company Number: US-ELI_LILLY_AND_COMPANY-US201207007567

PATIENT
  Age: 58 Year
  Sex: Male

DRUGS (22)
  1. FORTEO [Suspect]
     Active Substance: TERIPARATIDE
     Dosage: 20 UG, QD
     Dates: start: 20120620, end: 20120719
  2. ZINC [Concomitant]
     Active Substance: ZINC\ZINC CHLORIDE
  3. POTASSIUM [Concomitant]
     Active Substance: POTASSIUM
     Dosage: UNK, UNKNOWN
  4. RESTASIS [Concomitant]
     Active Substance: CYCLOSPORINE
  5. PHENERGAN [Concomitant]
     Active Substance: PROMETHAZINE HYDROCHLORIDE
  6. COUMADIN [Concomitant]
     Active Substance: WARFARIN SODIUM
  7. KLONOPIN [Concomitant]
     Active Substance: CLONAZEPAM
  8. WELLBUTRIN [Concomitant]
     Active Substance: BUPROPION HYDROCHLORIDE
  9. ZONISAMIDE. [Concomitant]
     Active Substance: ZONISAMIDE
  10. VITAMIN B12 [Concomitant]
     Active Substance: CYANOCOBALAMIN
  11. IPRATROPIUM [Concomitant]
     Active Substance: IPRATROPIUM
  12. TRILEPTAL [Concomitant]
     Active Substance: OXCARBAZEPINE
  13. BETHANECHOL [Concomitant]
     Active Substance: BETHANECHOL
  14. CALCIUM [Concomitant]
     Active Substance: CALCIUM
  15. MAGNESIUM [Concomitant]
     Active Substance: MAGNESIUM
  16. NEXIUM [Concomitant]
     Active Substance: ESOMEPRAZOLE MAGNESIUM
  17. B6 [Concomitant]
     Active Substance: PYRIDOXINE HYDROCHLORIDE
  18. VITAMIN D [Concomitant]
     Active Substance: CHOLECALCIFEROL
  19. ACTIQ [Concomitant]
     Active Substance: FENTANYL CITRATE
  20. AMITIZA [Concomitant]
     Active Substance: LUBIPROSTONE
  21. TERIZIDONE [Concomitant]
     Active Substance: TERIZIDONE
  22. LUNESTA [Concomitant]
     Active Substance: ESZOPICLONE

REACTIONS (15)
  - Malaise [Unknown]
  - Arthralgia [Unknown]
  - Joint swelling [Unknown]
  - Headache [Unknown]
  - Rib fracture [Unknown]
  - Balance disorder [Unknown]
  - Migraine [Unknown]
  - Sinusitis [Recovering/Resolving]
  - Pain in extremity [Unknown]
  - Pyrexia [Unknown]
  - Gait disturbance [Unknown]
  - Back injury [Unknown]
  - Rheumatoid arthritis [Unknown]
  - Feeling abnormal [Unknown]
  - Pain [Unknown]

NARRATIVE: CASE EVENT DATE: 20120716
